FAERS Safety Report 9434348 (Version 1)
Quarter: 2013Q3

REPORT INFORMATION
  Report Type: Spontaneous
  Country: FR (occurrence: FR)
  Receive Date: 20130801
  Receipt Date: 20130801
  Transmission Date: 20140515
  Serious: Yes (Death)
  Sender: FDA-Public Use
  Company Number: FR-JNJFOC-20130714872

PATIENT
  Age: 68 Year
  Sex: Male

DRUGS (4)
  1. PREZISTA [Suspect]
     Indication: HIV INFECTION
     Route: 048
  2. EFFEXOR [Suspect]
     Indication: DEPRESSION
     Route: 048
  3. NORVIR [Suspect]
     Indication: HIV INFECTION
     Route: 048
  4. KIVEXA [Suspect]
     Indication: HIV INFECTION
     Route: 048

REACTIONS (2)
  - Electrocardiogram QT prolonged [Fatal]
  - Cardio-respiratory arrest [Fatal]
